FAERS Safety Report 8903075 (Version 2)
Quarter: 2012Q4

REPORT INFORMATION
  Report Type: Report from Study
  Country: DE (occurrence: DE)
  Receive Date: 20121112
  Receipt Date: 20121120
  Transmission Date: 20130627
  Serious: Yes (Death, Hospitalization)
  Sender: FDA-Public Use
  Company Number: DE-SANOFI-AVENTIS-2012SA082583

PATIENT
  Age: 70 Year
  Sex: Male
  Weight: 55 kg

DRUGS (3)
  1. OXALIPLATIN [Suspect]
     Indication: RECTAL CANCER
     Dosage: actual dose given- 85mg, 30mg/m2 i.v. on D1,8,15,22+29
     Route: 042
     Dates: start: 20110704, end: 20110718
  2. CAPECITABINE [Suspect]
     Indication: RECTAL CANCER
     Dosage: actual dose given- 3000 mg, 1000mg/m2 p.o. bid D1-15 of 3 week cycle
     Route: 048
     Dates: start: 20110704, end: 20120305
  3. THERAPEUTIC RADIOPHARMACEUTICALS [Suspect]
     Indication: RECTAL CANCER
     Dosage: actual dose given- 18 Gy, 45 Gy total dose, 1.8 Gy on D1-33 without weekends+optional boost
     Dates: start: 20110704, end: 20110809

REACTIONS (1)
  - Subileus [Fatal]
